FAERS Safety Report 9417082 (Version 1)
Quarter: 2013Q3

REPORT INFORMATION
  Report Type: Spontaneous
  Country: GB (occurrence: GB)
  Receive Date: 20130724
  Receipt Date: 20130724
  Transmission Date: 20140515
  Serious: Yes (Other)
  Sender: FDA-Public Use
  Company Number: GB-PFIZER INC-2013211400

PATIENT
  Age: 70 Year
  Sex: Female
  Weight: 77 kg

DRUGS (10)
  1. DOXAZOSIN MESILATE [Suspect]
     Indication: BLOOD PRESSURE INCREASED
     Dosage: 4 MG, UNK
     Route: 048
     Dates: start: 2000
  2. DOXAZOSIN MESILATE [Suspect]
     Dosage: 6 MG, UNK
     Route: 048
     Dates: end: 2013
  3. QUININE SULPHATE [Concomitant]
     Dosage: UNK
  4. BENDROFLUMETHIAZIDE [Concomitant]
     Dosage: UNK
  5. PARACETAMOL [Concomitant]
     Dosage: UNK
  6. OMEPRAZOLE [Concomitant]
     Dosage: UNK
  7. COUCH-GRASS [Concomitant]
     Dosage: UNK
  8. EQUISETUM ARVENSE [Concomitant]
     Dosage: UNK
  9. KELP [Concomitant]
     Dosage: UNK
  10. SOLIDAGO [Concomitant]
     Dosage: UNK

REACTIONS (9)
  - Urinary incontinence [Recovered/Resolved]
  - Movement disorder [Recovered/Resolved with Sequelae]
  - Alopecia [Recovered/Resolved with Sequelae]
  - Confusional state [Recovered/Resolved with Sequelae]
  - Gait disturbance [Not Recovered/Not Resolved]
  - Memory impairment [Recovered/Resolved]
  - Faecal incontinence [Recovered/Resolved]
  - Reaction to drug excipients [Unknown]
  - Feeling abnormal [Recovered/Resolved with Sequelae]
